FAERS Safety Report 4461209-4 (Version None)
Quarter: 2004Q3

REPORT INFORMATION
  Report Type: 
  Country: None (occurrence: None)
  Receive Date: 20040923
  Receipt Date: 20040913
  Transmission Date: 20050211
  Serious: Yes (Death, Hospitalization, Other)
  Sender: FDA-Public Use
  Company Number: US-JNJFOC-20040903683

PATIENT
  Age: 40 Year
  Sex: Male

DRUGS (9)
  1. EXTRA STRENGTH TYLENOL [Suspect]
     Indication: SUICIDE ATTEMPT
     Dosage: ORAL
     Route: 048
  2. CITALOPRAM [Suspect]
     Indication: SUICIDE ATTEMPT
     Dosage: ORAL
     Route: 048
  3. CLONAZEPAM [Suspect]
     Indication: SUICIDE ATTEMPT
     Dosage: ORAL
     Route: 048
  4. BUSPIRONE [Suspect]
     Indication: SUICIDE ATTEMPT
     Dosage: ORAL
     Route: 048
  5. FEXOFENADINE HCL [Suspect]
     Indication: SUICIDE ATTEMPT
     Dosage: ORAL
     Route: 048
  6. GABAPENTIN [Suspect]
     Indication: SUICIDE ATTEMPT
     Dosage: ORAL
     Route: 048
  7. DICYLCOMINE/PHENOBARBITAL (MERBENTYL WITH PHENOBARBITONE) [Suspect]
     Indication: SUICIDE ATTEMPT
     Dosage: ORAL
     Route: 048
  8. OLANZAPINE [Suspect]
     Indication: SUICIDE ATTEMPT
     Dosage: ORAL
     Route: 048
  9. TOPIRAMATE [Suspect]
     Indication: SUICIDE ATTEMPT
     Dosage: ORAL
     Route: 048

REACTIONS (14)
  - AGGRESSION [None]
  - ANION GAP INCREASED [None]
  - BLOOD BICARBONATE DECREASED [None]
  - BLOOD GLUCOSE DECREASED [None]
  - BLOOD PH DECREASED [None]
  - COMA [None]
  - MENINGITIS [None]
  - PARALYSIS [None]
  - PCO2 DECREASED [None]
  - PCO2 INCREASED [None]
  - SEPSIS [None]
  - TOXICOLOGIC TEST ABNORMAL [None]
  - TRANSAMINASES INCREASED [None]
  - WHITE BLOOD CELL COUNT DECREASED [None]
